FAERS Safety Report 15784245 (Version 1)
Quarter: 2019Q1

REPORT INFORMATION
  Report Type: Report from Study
  Country: None (occurrence: AR)
  Receive Date: 20190103
  Receipt Date: 20190103
  Transmission Date: 20190417
  Serious: Yes (Other)
  Sender: FDA-Public Use
  Company Number: AR-ABBVIE-19K-007-2610698-00

PATIENT
  Age: 56 Year
  Sex: Female

DRUGS (2)
  1. MESALAZINE 120 [Concomitant]
     Indication: COLITIS ULCERATIVE
     Route: 048
     Dates: start: 201810
  2. HUMIRA [Suspect]
     Active Substance: ADALIMUMAB
     Indication: COLITIS ULCERATIVE
     Route: 058
     Dates: start: 20180709

REACTIONS (2)
  - Anaemia [Not Recovered/Not Resolved]
  - Haemorrhage [Unknown]

NARRATIVE: CASE EVENT DATE: 201810
